FAERS Safety Report 19973934 (Version 1)
Quarter: 2021Q4

REPORT INFORMATION
  Report Type: Spontaneous
  Country: US (occurrence: US)
  Receive Date: 20211020
  Receipt Date: 20211020
  Transmission Date: 20220303
  Serious: No
  Sender: FDA-Public Use
  Company Number: US-TEVA-2021-US-1965406

PATIENT
  Age: 68 Year
  Sex: Female

DRUGS (4)
  1. ESTAZOLAM [Suspect]
     Active Substance: ESTAZOLAM
     Indication: Insomnia
     Dosage: TAKING AT BEDTIME
     Route: 065
     Dates: start: 20211002, end: 20211006
  2. ESTAZOLAM [Suspect]
     Active Substance: ESTAZOLAM
     Route: 065
     Dates: start: 20211003
  3. ESTAZOLAM [Suspect]
     Active Substance: ESTAZOLAM
     Route: 065
     Dates: start: 20211004
  4. ESTAZOLAM [Suspect]
     Active Substance: ESTAZOLAM
     Route: 065
     Dates: start: 20211005

REACTIONS (4)
  - Confusional state [Unknown]
  - Insomnia [Unknown]
  - Dizziness [Not Recovered/Not Resolved]
  - Tinnitus [Not Recovered/Not Resolved]

NARRATIVE: CASE EVENT DATE: 20211002
